FAERS Safety Report 8863139 (Version 4)
Quarter: 2013Q4

REPORT INFORMATION
  Report Type: Report from Study
  Country: JP (occurrence: JP)
  Receive Date: 20121026
  Receipt Date: 20131115
  Transmission Date: 20140711
  Serious: Yes (Other)
  Sender: FDA-Public Use
  Company Number: JP-VERTEX PHARMACEUTICAL INC.-AE-2012-008976

PATIENT
  Age: 55 Year
  Sex: Female

DRUGS (18)
  1. VX-950 (TELAPREVIR) [Suspect]
     Indication: CHRONIC HEPATITIS C
     Dosage: 2250 MG, QD
     Route: 048
     Dates: start: 20120417, end: 20120709
  2. RIBAVIRIN [Suspect]
     Indication: CHRONIC HEPATITIS C
     Dosage: 600 MG, QD
     Route: 048
     Dates: start: 20120417, end: 20120507
  3. RIBAVIRIN [Suspect]
     Dosage: 400 MG, QD
     Route: 048
     Dates: start: 20120508, end: 20120514
  4. RIBAVIRIN [Suspect]
     Dosage: 200 MG, QD
     Route: 048
     Dates: start: 20120529, end: 20120618
  5. RIBAVIRIN [Suspect]
     Dosage: 400 MG, QD
     Route: 048
     Dates: start: 20120619, end: 20120702
  6. RIBAVIRIN [Suspect]
     Dosage: 200 MG, QD
     Route: 048
     Dates: start: 20120703, end: 20120709
  7. RIBAVIRIN [Suspect]
     Dosage: 400 MG, QD
     Route: 048
     Dates: start: 20120710, end: 20120716
  8. RIBAVIRIN [Suspect]
     Dosage: 200 MG, QD
     Route: 048
     Dates: start: 20120717, end: 20120806
  9. RIBAVIRIN [Suspect]
     Dosage: 400 MG, QD
     Route: 048
     Dates: start: 20120807, end: 20121008
  10. PEGINTERFERON ALFA-2B [Suspect]
     Indication: CHRONIC HEPATITIS C
     Dosage: 1.5 ?G/KG, QW
     Route: 058
     Dates: start: 20120417, end: 20120925
  11. URSO [Suspect]
     Indication: CHOLELITHIASIS
     Dosage: 600 MG, QD
     Route: 048
  12. ASTOMIN [Suspect]
     Indication: COUGH
     Dosage: 60 MG, QD
     Route: 048
     Dates: start: 20120529
  13. ALOSITOL [Concomitant]
     Dosage: 100 MG, QD
     Route: 048
     Dates: start: 20120619, end: 20120723
  14. MAGLAX [Concomitant]
     Dosage: 900 MG, QD
     Route: 048
     Dates: start: 20120508, end: 20120515
  15. CLARITIN [Concomitant]
     Dosage: 10 MG, QD
     Route: 048
     Dates: start: 20120421
  16. TALION [Concomitant]
     Dosage: 20 MG, QD
     Route: 048
     Dates: start: 20120626
  17. PARIET [Concomitant]
     Dosage: 10 MG, QD
     Route: 048
     Dates: start: 20120821
  18. MUCOSTA [Concomitant]
     Dosage: 150 MG, QD
     Route: 048
     Dates: start: 20120828

REACTIONS (1)
  - White blood cell count decreased [Recovered/Resolved]
